FAERS Safety Report 8169413-9 (Version None)
Quarter: 2012Q1

REPORT INFORMATION
  Report Type: 
  Country: None (occurrence: None)
  Receive Date: 20120222
  Receipt Date: 20120214
  Transmission Date: 20120608
  Serious: Yes (Congenital Anomaly)
  Sender: FDA-Public Use
  Company Number: 2012039856

PATIENT

DRUGS (1)
  1. FRAGMIN [Suspect]
     Dosage: 5000 IU, TRANSPLACENTAL
     Route: 064

REACTIONS (2)
  - MATERNAL DRUGS AFFECTING FOETUS [None]
  - CONGENITAL CENTRAL NERVOUS SYSTEM ANOMALY [None]
